FAERS Safety Report 5640689-2 (Version None)
Quarter: 2008Q1

REPORT INFORMATION
  Report Type: 
  Country: None (occurrence: None)
  Receive Date: 20080227
  Receipt Date: 20080215
  Transmission Date: 20080703
  Serious: Yes (Other)
  Sender: FDA-Public Use
  Company Number: HQWYE890913JUL06

PATIENT
  Sex: Female

DRUGS (1)
  1. PREMPRO [Suspect]
     Dosage: UNKNOWN, 132 MOS. (11 YEARS)
     Route: 048
     Dates: start: 19900101, end: 20010601

REACTIONS (1)
  - BREAST CANCER METASTATIC [None]
